FAERS Safety Report 10042639 (Version 3)
Quarter: 2014Q2

REPORT INFORMATION
  Report Type: Report from Study
  Country: CN (occurrence: CN)
  Receive Date: 20140327
  Receipt Date: 20140402
  Transmission Date: 20141212
  Serious: Yes (Death, Hospitalization)
  Sender: FDA-Public Use
  Company Number: PHHO2014CN000506

PATIENT
  Age: 30 Year
  Sex: Female
  Weight: 38.5 kg

DRUGS (2)
  1. ICL670A [Suspect]
     Indication: THALASSAEMIA
     Dosage: 10 MG/KG, QD
     Route: 048
     Dates: start: 20131119, end: 20131217
  2. ICL670A [Suspect]
     Dosage: 20 MG/KG, QD
     Route: 048
     Dates: start: 20131218, end: 20140206

REACTIONS (2)
  - Cardiac failure [Fatal]
  - Pneumonia [Fatal]
